FAERS Safety Report 9457941 (Version 3)
Quarter: 2014Q3

REPORT INFORMATION
  Report Type: Spontaneous
  Country: US (occurrence: US)
  Receive Date: 20130814
  Receipt Date: 20140701
  Transmission Date: 20150326
  Serious: Yes (Hospitalization)
  Sender: FDA-Public Use
  Company Number: US-BAYER-2013-097949

PATIENT
  Age: 28 Year
  Sex: Female
  Weight: 63.49 kg

DRUGS (1)
  1. MIRENA [Suspect]
     Active Substance: LEVONORGESTREL
     Indication: CONTRACEPTION
     Dosage: 20 MCG/24HR, CONT
     Route: 015
     Dates: start: 20110114, end: 20110726

REACTIONS (9)
  - Emotional distress [None]
  - Depression [None]
  - Pain [None]
  - Injury [None]
  - Uterine perforation [None]
  - Psychological trauma [None]
  - Alcoholism [None]
  - Anxiety [None]
  - Self esteem decreased [None]
